FAERS Safety Report 7565890-2 (Version None)
Quarter: 2011Q2

REPORT INFORMATION
  Report Type: 
  Country: None (occurrence: None)
  Receive Date: 20110623
  Receipt Date: 20110621
  Transmission Date: 20111010
  Serious: Yes (Other)
  Sender: FDA-Public Use
  Company Number: US-PFIZER INC-2011137413

PATIENT
  Sex: Male
  Weight: 122 kg

DRUGS (2)
  1. LITHIUM [Concomitant]
     Indication: BIPOLAR DISORDER
     Dosage: 300 MG, 2X/DAY
     Route: 048
  2. GEODON [Suspect]
     Indication: BIPOLAR DISORDER
     Dosage: 40 MG, DAILY
     Dates: start: 20110608, end: 20110614

REACTIONS (3)
  - RASH ERYTHEMATOUS [None]
  - SWOLLEN TONGUE [None]
  - HYPERSENSITIVITY [None]
